FAERS Safety Report 21992797 (Version 2)
Quarter: 2023Q1

REPORT INFORMATION
  Report Type: Other
  Country: US (occurrence: None)
  Receive Date: 20230215
  Receipt Date: 20230215
  Transmission Date: 20230418
  Serious: No
  Sender: FDA-Public Use
  Company Number: US-ROCHE-3286166

PATIENT
  Age: 69 Year
  Sex: Male
  Weight: 95.340 kg

DRUGS (3)
  1. OCREVUS [Suspect]
     Active Substance: OCRELIZUMAB
     Indication: Secondary progressive multiple sclerosis
     Dosage: NO
     Route: 042
     Dates: start: 201905, end: 201905
  2. DALFAMPRIDINE [Concomitant]
     Active Substance: DALFAMPRIDINE
  3. AMANTADINE [Concomitant]
     Active Substance: AMANTADINE

REACTIONS (1)
  - Influenza [Recovered/Resolved]

NARRATIVE: CASE EVENT DATE: 20191201
